FAERS Safety Report 15998725 (Version 2)
Quarter: 2025Q3

REPORT INFORMATION
  Report Type: Report from Study
  Country: EU (occurrence: EU)
  Receive Date: 20190223
  Receipt Date: 20250717
  Transmission Date: 20251020
  Serious: Yes (Death, Hospitalization)
  Sender: TEVA
  Company Number: None

PATIENT
  Age: 81 Year
  Sex: Male
  Weight: 68 kg

DRUGS (21)
  1. CAPECITABINE [Suspect]
     Active Substance: CAPECITABINE
     Indication: Adenocarcinoma
     Route: 048
     Dates: start: 20121206, end: 20130529
  2. CAPECITABINE [Suspect]
     Active Substance: CAPECITABINE
     Indication: Adenocarcinoma
     Route: 048
     Dates: start: 20121206, end: 20121218
  3. CAPECITABINE [Suspect]
     Active Substance: CAPECITABINE
     Indication: Adenocarcinoma
     Dosage: LAST DOSE OF PRIOR TO SAE ON 20/FEB/2013
     Route: 048
     Dates: start: 20121206, end: 20121218
  4. CAPECITABINE [Suspect]
     Active Substance: CAPECITABINE
     Indication: Adenocarcinoma
     Route: 048
     Dates: start: 20121206, end: 20130529
  5. RISPERIDONE [Concomitant]
     Active Substance: RISPERIDONE
     Indication: Dementia
     Route: 048
     Dates: start: 2013
  6. LORAZEPAM [Concomitant]
     Active Substance: LORAZEPAM
     Indication: Dementia
     Route: 048
     Dates: start: 2013
  7. CANDESARTAN [Concomitant]
     Active Substance: CANDESARTAN
     Indication: Hypertension
     Route: 048
     Dates: start: 20140301
  8. MIRTAZAPINE [Concomitant]
     Active Substance: MIRTAZAPINE
     Indication: Dementia
     Route: 048
     Dates: start: 200505
  9. AGGRENOX [Concomitant]
     Active Substance: ASPIRIN\DIPYRIDAMOLE
     Indication: Infarction
     Route: 048
     Dates: start: 201004
  10. OMEPRAZOLE [Concomitant]
     Active Substance: OMEPRAZOLE
     Indication: Product used for unknown indication
     Route: 048
     Dates: start: 2013
  11. MELPERONE [Concomitant]
     Active Substance: MELPERONE
     Indication: Dementia
     Route: 048
  12. AMLODIPINE BESYLATE [Concomitant]
     Active Substance: AMLODIPINE BESYLATE
     Indication: Hypertension
     Route: 065
     Dates: start: 20140301
  13. BEVACIZUMAB [Suspect]
     Active Substance: BEVACIZUMAB
     Indication: Adenocarcinoma
     Route: 042
     Dates: start: 20130219
  14. BEVACIZUMAB [Suspect]
     Active Substance: BEVACIZUMAB
     Indication: Adenocarcinoma
     Route: 042
     Dates: end: 20130513
  15. BEVACIZUMAB [Suspect]
     Active Substance: BEVACIZUMAB
     Indication: Adenocarcinoma
     Dosage: DOSAGE TEXT: DOSE= 350 MG, LAST DOSE OF PRIOR TO SAE ON 19/FEB/2013
     Route: 042
     Dates: start: 20121204
  16. CEFUROXIME [Concomitant]
     Active Substance: CEFUROXIME
     Indication: Product used for unknown indication
     Route: 042
     Dates: start: 20140228, end: 20140304
  17. CEFUROXIME [Concomitant]
     Active Substance: CEFUROXIME
     Indication: Product used for unknown indication
     Route: 048
     Dates: start: 20140304, end: 20140307
  18. ATOSIL [Concomitant]
     Indication: Product used for unknown indication
     Route: 048
     Dates: start: 20130308
  19. TAMSULOSIN [Concomitant]
     Active Substance: TAMSULOSIN
     Indication: Prostate cancer
     Route: 048
     Dates: start: 2005
  20. RAMIPRIL [Concomitant]
     Active Substance: RAMIPRIL
     Indication: Hypertension
     Route: 048
     Dates: start: 200505, end: 20140301
  21. METFORMIN [Concomitant]
     Active Substance: METFORMIN HYDROCHLORIDE
     Indication: Type 2 diabetes mellitus
     Route: 065
     Dates: start: 200505

REACTIONS (4)
  - Pneumonia [Fatal]
  - Pneumonia [Recovered/Resolved]
  - Pyrexia [Recovered/Resolved]
  - Respiratory failure [Fatal]

NARRATIVE: CASE EVENT DATE: 20130224
